FAERS Safety Report 19024820 (Version 1)
Quarter: 2021Q1

REPORT INFORMATION
  Report Type: Report from Study
  Country: GB (occurrence: US)
  Receive Date: 20210318
  Receipt Date: 20210318
  Transmission Date: 20210420
  Serious: Yes (Other)
  Sender: FDA-Public Use
  Company Number: GB-ADVANZ PHARMA-202103001837

PATIENT

DRUGS (7)
  1. DIGOXIN. [Suspect]
     Active Substance: DIGOXIN
     Indication: PRODUCT USED FOR UNKNOWN INDICATION
     Dosage: 0 OT, UNK
     Route: 065
  2. ZANTAC [Suspect]
     Active Substance: RANITIDINE HYDROCHLORIDE
     Indication: DYSPEPSIA
     Dosage: 150 MG, QD
     Route: 065
     Dates: start: 198401, end: 201401
  3. ZANTAC [Suspect]
     Active Substance: RANITIDINE HYDROCHLORIDE
     Indication: DYSPEPSIA
     Dosage: 150 MG, QD
     Route: 065
     Dates: start: 198401, end: 201401
  4. ZANTAC [Suspect]
     Active Substance: RANITIDINE HYDROCHLORIDE
     Indication: ABDOMINAL DISCOMFORT
     Dosage: 150 MG, QD
     Route: 065
     Dates: start: 198401, end: 201401
  5. DICLOFENAC SODIUM. [Suspect]
     Active Substance: DICLOFENAC SODIUM
     Dosage: 0 OT, UNK
     Route: 048
     Dates: start: 19830704, end: 19830804
  6. NAVIDREX?K [Suspect]
     Active Substance: CYCLOPENTHIAZIDE\POTASSIUM CHLORIDE
     Indication: PRODUCT USED FOR UNKNOWN INDICATION
     Dosage: 0 OT, UNK
     Route: 065
  7. ZANTAC [Suspect]
     Active Substance: RANITIDINE HYDROCHLORIDE
     Indication: ABDOMINAL DISCOMFORT
     Dosage: 150 MG, QD
     Route: 065
     Dates: start: 198401, end: 201401

REACTIONS (2)
  - Breast cancer [Unknown]
  - Acute kidney injury [Unknown]
